FAERS Safety Report 20566654 (Version 2)
Quarter: 2022Q2

REPORT INFORMATION
  Report Type: Report from Study
  Country: IN (occurrence: IN)
  Receive Date: 20220308
  Receipt Date: 20220404
  Transmission Date: 20220721
  Serious: Yes (Other)
  Sender: FDA-Public Use
  Company Number: IN-NOVARTISPH-NVSC2022IN053919

PATIENT
  Age: 49 Year
  Sex: Male

DRUGS (2)
  1. ELTROMBOPAG OLAMINE [Suspect]
     Active Substance: ELTROMBOPAG OLAMINE
     Indication: Aplastic anaemia
     Dosage: 150 MG, QD
     Route: 065
     Dates: start: 20211118, end: 20220302
  2. ELTROMBOPAG OLAMINE [Suspect]
     Active Substance: ELTROMBOPAG OLAMINE
     Dosage: 150 MG, QD
     Route: 065
     Dates: start: 20220129, end: 20220218

REACTIONS (1)
  - Hepatic infection [Unknown]

NARRATIVE: CASE EVENT DATE: 20220218
